FAERS Safety Report 18172918 (Version 1)
Quarter: 2020Q3

REPORT INFORMATION
  Report Type: Report from Study
  Country: GR (occurrence: GR)
  Receive Date: 20200820
  Receipt Date: 20200820
  Transmission Date: 20201103
  Serious: Yes (Other)
  Sender: FDA-Public Use
  Company Number: GR-ACCORD-196330

PATIENT

DRUGS (2)
  1. MITOMYCIN. [Suspect]
     Active Substance: MITOMYCIN
     Indication: GLAUCOMA SURGERY
     Route: 057
  2. LIDOCAINE. [Suspect]
     Active Substance: LIDOCAINE
     Indication: GLAUCOMA SURGERY
     Route: 057

REACTIONS (1)
  - Hypotony of eye [Unknown]
